FAERS Safety Report 8301121-3 (Version None)
Quarter: 2012Q2

REPORT INFORMATION
  Report Type: 
  Country: None (occurrence: None)
  Receive Date: 20120420
  Receipt Date: 20120411
  Transmission Date: 20120825
  Serious: Yes (Other)
  Sender: FDA-Public Use
  Company Number: CA-ASTRAZENECA-2012SE23935

PATIENT
  Age: 72 Year
  Sex: Female

DRUGS (1)
  1. ARIMIDEX [Suspect]
     Route: 048

REACTIONS (7)
  - RAPID EYE MOVEMENTS SLEEP ABNORMAL [None]
  - SLEEP TALKING [None]
  - HEAD INJURY [None]
  - INCORRECT DRUG ADMINISTRATION DURATION [None]
  - OSTEOPOROSIS [None]
  - FALL [None]
  - HEADACHE [None]
